FAERS Safety Report 4998464-8 (Version None)
Quarter: 2006Q2

REPORT INFORMATION
  Report Type: 
  Country: None (occurrence: None)
  Receive Date: 20060510
  Receipt Date: 20060501
  Transmission Date: 20061013
  Serious: Yes (Hospitalization)
  Sender: FDA-Public Use
  Company Number: NL-GLAXOSMITHKLINE-B0423143A

PATIENT
  Age: 28 Year
  Sex: Female
  Weight: 83 kg

DRUGS (1)
  1. PAROXETINE HYDROCHLORIDE [Suspect]
     Indication: DEPRESSION
     Dosage: 20MG UNKNOWN
     Route: 065
     Dates: start: 20000301

REACTIONS (7)
  - AGGRESSION [None]
  - ANGER [None]
  - IMPULSIVE BEHAVIOUR [None]
  - MANIA [None]
  - RESTLESSNESS [None]
  - SELF MUTILATION [None]
  - SUICIDAL IDEATION [None]
